FAERS Safety Report 7388076 (Version 3)
Quarter: 2013Q2

REPORT INFORMATION
  Report Type: Spontaneous
  Country: US (occurrence: US)
  Receive Date: 20100514
  Receipt Date: 20120731
  Transmission Date: 20140414
  Serious: Yes (Other)
  Sender: FDA-Public Use
  Company Number: PHEH2010US03429

PATIENT
  Sex: 0

DRUGS (2)
  1. AREDIA [Suspect]
  2. ZOMETA [Suspect]

REACTIONS (8)
  - OSTEONECROSIS OF JAW [Unknown]
  - ANXIETY [Unknown]
  - PHYSICAL DISABILITY [Unknown]
  - PAIN [Unknown]
  - ANHEDONIA [Unknown]
  - INJURY [Unknown]
  - EMOTIONAL DISTRESS [Unknown]
  - DEFORMITY [Unknown]
